FAERS Safety Report 15743992 (Version 12)
Quarter: 2019Q4

REPORT INFORMATION
  Report Type: Report from Study
  Country: DE (occurrence: DE)
  Receive Date: 20181220
  Receipt Date: 20191230
  Transmission Date: 20200122
  Serious: Yes (Death, Hospitalization, Other)
  Sender: FDA-Public Use
  Company Number: DE-BRISTOL-MYERS SQUIBB COMPANY-BMS-2018-067252

PATIENT
  Age: 55 Year
  Sex: Male
  Weight: 43 kg

DRUGS (2)
  1. NIVOLUMAB [Suspect]
     Active Substance: NIVOLUMAB
     Indication: SQUAMOUS CELL CARCINOMA OF HEAD AND NECK
     Dosage: 3 MG/KG, Q2WK
     Route: 042
     Dates: start: 20180327, end: 20181101
  2. PANTOZOL [Concomitant]
     Active Substance: PANTOPRAZOLE SODIUM
     Indication: PRODUCT USED FOR UNKNOWN INDICATION
     Dosage: UNK
     Route: 065

REACTIONS (20)
  - Vitamin D deficiency [Recovered/Resolved]
  - Dysphagia [Not Recovered/Not Resolved]
  - Headache [Not Recovered/Not Resolved]
  - Hypokalaemia [Recovered/Resolved]
  - Hypoglycaemia [Recovered/Resolved]
  - Dehydration [Recovered/Resolved]
  - Diarrhoea [Recovered/Resolved]
  - Muscle tightness [Not Recovered/Not Resolved]
  - Hyperkalaemia [Recovered/Resolved]
  - Stoma site infection [Recovered/Resolved]
  - Hypothyroidism [Not Recovered/Not Resolved]
  - General physical health deterioration [Fatal]
  - Cachexia [Recovered/Resolved with Sequelae]
  - Haemorrhage [Recovered/Resolved]
  - Hypophosphataemia [Recovered/Resolved]
  - Respiratory failure [Fatal]
  - Mucosal inflammation [Recovered/Resolved]
  - Neck pain [Not Recovered/Not Resolved]
  - Hypomagnesaemia [Not Recovered/Not Resolved]
  - Weight decreased [Not Recovered/Not Resolved]

NARRATIVE: CASE EVENT DATE: 20180409
